FAERS Safety Report 4491649-9 (Version None)
Quarter: 2004Q4

REPORT INFORMATION
  Report Type: 
  Country: None (occurrence: None)
  Receive Date: 20041101
  Receipt Date: 20041020
  Transmission Date: 20050328
  Serious: Yes (Death)
  Sender: FDA-Public Use
  Company Number: 2004GB02518

PATIENT
  Age: 22 Year
  Sex: Female

DRUGS (6)
  1. SYMBICORT [Suspect]
     Indication: COUGH
     Dosage: 2 PUFF BID IH
     Route: 055
     Dates: start: 20040928
  2. SYMBICORT [Suspect]
     Indication: RESPIRATORY TRACT IRRITATION
     Dosage: 2 PUFF BID IH
     Route: 055
     Dates: start: 20040928
  3. PROCHLORPERAZINE MALEATE [Concomitant]
  4. AMOXICILLIN [Concomitant]
  5. PREDNISOLONE [Concomitant]
  6. LOSEC [Concomitant]

REACTIONS (4)
  - CIRCULATORY COLLAPSE [None]
  - DIZZINESS [None]
  - MASS [None]
  - SENSATION OF FOREIGN BODY [None]
